FAERS Safety Report 24625790 (Version 1)
Quarter: 2024Q4

REPORT INFORMATION
  Report Type: Spontaneous
  Country: US (occurrence: US)
  Receive Date: 20241115
  Receipt Date: 20241115
  Transmission Date: 20250115
  Serious: No
  Sender: ANI
  Company Number: US-ANIPHARMA-2024-US-046169

PATIENT
  Age: 72 Year
  Sex: Female

DRUGS (1)
  1. CORTICOTROPIN [Suspect]
     Active Substance: CORTICOTROPIN
     Indication: Uveitis
     Dosage: INJECT 80 UNITS (1ML) SUBCUTANEOUSLY EVERY 48 HOURS AS DIRECTED.
     Route: 058
     Dates: start: 202407

REACTIONS (3)
  - Night sweats [Unknown]
  - Blood pressure increased [Unknown]
  - Fall [Unknown]
